FAERS Safety Report 4686108-4 (Version None)
Quarter: 2005Q2

REPORT INFORMATION
  Report Type: 
  Country: None (occurrence: None)
  Receive Date: 20050609
  Receipt Date: 20050330
  Transmission Date: 20051028
  Serious: Yes (Hospitalization, Other)
  Sender: FDA-Public Use
  Company Number: US-GLAXOSMITHKLINE-A0560523A

PATIENT
  Age: 62 Year
  Sex: Male
  Weight: 154 kg

DRUGS (14)
  1. SENSODYNE-F [Suspect]
     Indication: SENSITIVITY OF TEETH
     Dates: start: 20000101
  2. ACCUPRIL [Concomitant]
     Dosage: 20MG TWICE PER DAY
     Route: 048
  3. AMIODARONE [Concomitant]
     Indication: ARRHYTHMIA
     Dosage: 200MG PER DAY
     Route: 048
  4. AVAPRO [Concomitant]
     Dosage: 300MG PER DAY
     Route: 048
  5. CARDIZEM [Concomitant]
     Indication: ARRHYTHMIA
     Dosage: 120MG PER DAY
     Route: 048
  6. CLONIDINE [Concomitant]
     Dosage: .2MG THREE TIMES PER DAY
     Route: 048
  7. COUMADIN [Concomitant]
     Indication: ANTICOAGULANT THERAPY
     Dosage: 8MG PER DAY
     Route: 048
  8. FUROSEMIDE [Concomitant]
     Indication: DIURETIC THERAPY
     Dosage: 20MG TWICE PER DAY
     Route: 048
  9. K-DUR 10 [Concomitant]
     Dosage: 10MEQ TWICE PER DAY
     Route: 048
  10. LIPITOR [Concomitant]
     Indication: BLOOD CHOLESTEROL DECREASED
     Route: 048
  11. RHINOCORT [Concomitant]
     Indication: MULTIPLE ALLERGIES
     Route: 055
  12. TESTIM [Concomitant]
     Indication: MUSCULAR WEAKNESS
     Dosage: 50MG PER DAY
     Route: 048
  13. ASPIRIN [Concomitant]
     Indication: PROPHYLAXIS
     Dosage: 81MG PER DAY
     Route: 048
  14. AMBIEN [Concomitant]
     Dosage: 5ML PER DAY
     Route: 048

REACTIONS (7)
  - ATRIAL FIBRILLATION [None]
  - CHEST PAIN [None]
  - DIZZINESS [None]
  - FEELING ABNORMAL [None]
  - HEART RATE DECREASED [None]
  - HEART RATE INCREASED [None]
  - VENTRICULAR EXTRASYSTOLES [None]
